FAERS Safety Report 4454943-3 (Version None)
Quarter: 2004Q3

REPORT INFORMATION
  Report Type: 
  Country: None (occurrence: None)
  Receive Date: 20040921
  Receipt Date: 20040910
  Transmission Date: 20050211
  Serious: Yes (Death)
  Sender: FDA-Public Use
  Company Number: US-ROCHE-380393

PATIENT
  Sex: Male
  Weight: 72.6 kg

DRUGS (10)
  1. FORTOVASE [Suspect]
     Indication: HIV INFECTION
     Route: 048
     Dates: end: 20030901
  2. OXANDRIN [Suspect]
     Route: 048
     Dates: start: 20010615, end: 20030615
  3. AGENERASE [Suspect]
     Indication: HIV INFECTION
     Route: 048
  4. NORVIR [Suspect]
     Indication: HIV INFECTION
     Route: 048
  5. KALETRA [Suspect]
     Indication: HIV INFECTION
     Route: 048
  6. VIRACEPT [Suspect]
     Indication: HIV INFECTION
     Route: 065
  7. UNKNOWN DRUG [Concomitant]
     Dosage: DRUG NAME - MONOXIDIL, COULD NOT BE FOUND ON ADVENT.
  8. BETA BLOCKING AGENTS [Concomitant]
  9. ANTIHYPERTENSIVES [Concomitant]
  10. MARIJUANA [Concomitant]

REACTIONS (7)
  - BRAIN NATRIURETIC PEPTIDE [None]
  - CHEST PAIN [None]
  - CORONARY ARTERY RESTENOSIS [None]
  - CORONARY ARTERY STENOSIS [None]
  - DYSPNOEA [None]
  - HYPERLIPIDAEMIA [None]
  - MYOCARDIAL INFARCTION [None]
